FAERS Safety Report 25127635 (Version 1)
Quarter: 2025Q1

REPORT INFORMATION
  Report Type: Spontaneous
  Country: US (occurrence: US)
  Receive Date: 20250327
  Receipt Date: 20250327
  Transmission Date: 20250408
  Serious: Yes (Hospitalization)
  Sender: ALKEM
  Company Number: None

PATIENT
  Age: 32 Year
  Sex: Male
  Weight: 83.8 kg

DRUGS (40)
  1. QUETIAPINE FUMARATE [Suspect]
     Active Substance: QUETIAPINE FUMARATE
     Indication: Schizoaffective disorder bipolar type
     Route: 065
  2. QUETIAPINE FUMARATE [Suspect]
     Active Substance: QUETIAPINE FUMARATE
     Indication: Attention deficit hyperactivity disorder
  3. QUETIAPINE FUMARATE [Suspect]
     Active Substance: QUETIAPINE FUMARATE
     Indication: Autism spectrum disorder
  4. OLANZAPINE [Suspect]
     Active Substance: OLANZAPINE
     Indication: Schizoaffective disorder bipolar type
     Route: 065
  5. OLANZAPINE [Suspect]
     Active Substance: OLANZAPINE
     Indication: Attention deficit hyperactivity disorder
     Route: 065
  6. OLANZAPINE [Suspect]
     Active Substance: OLANZAPINE
     Indication: Autism spectrum disorder
     Route: 065
  7. CLOZAPINE [Suspect]
     Active Substance: CLOZAPINE
     Indication: Schizoaffective disorder bipolar type
     Route: 065
  8. CLOZAPINE [Suspect]
     Active Substance: CLOZAPINE
     Indication: Attention deficit hyperactivity disorder
     Route: 065
  9. CLOZAPINE [Suspect]
     Active Substance: CLOZAPINE
     Indication: Autism spectrum disorder
     Route: 065
  10. CLOZAPINE [Suspect]
     Active Substance: CLOZAPINE
     Route: 065
  11. ESCITALOPRAM [Suspect]
     Active Substance: ESCITALOPRAM OXALATE
     Indication: Schizoaffective disorder bipolar type
     Dosage: 10 MILLIGRAM, QD
     Route: 065
  12. ESCITALOPRAM [Suspect]
     Active Substance: ESCITALOPRAM OXALATE
     Indication: Attention deficit hyperactivity disorder
     Route: 065
  13. ESCITALOPRAM [Suspect]
     Active Substance: ESCITALOPRAM OXALATE
     Indication: Autism spectrum disorder
  14. BENZTROPINE [Suspect]
     Active Substance: BENZTROPINE
     Indication: Schizoaffective disorder bipolar type
     Dosage: 1 MILLIGRAM, BID
     Route: 065
  15. BENZTROPINE [Suspect]
     Active Substance: BENZTROPINE
     Indication: Attention deficit hyperactivity disorder
  16. BENZTROPINE [Suspect]
     Active Substance: BENZTROPINE
     Indication: Autism spectrum disorder
  17. DIVALPROEX SODIUM [Suspect]
     Active Substance: DIVALPROEX SODIUM
     Indication: Schizoaffective disorder bipolar type
     Route: 065
  18. DIVALPROEX SODIUM [Suspect]
     Active Substance: DIVALPROEX SODIUM
     Indication: Attention deficit hyperactivity disorder
  19. DIVALPROEX SODIUM [Suspect]
     Active Substance: DIVALPROEX SODIUM
     Indication: Autism spectrum disorder
  20. PERPHENAZINE [Suspect]
     Active Substance: PERPHENAZINE
     Indication: Schizoaffective disorder bipolar type
     Dosage: 16 MILLIGRAM, QD
     Route: 065
  21. PERPHENAZINE [Suspect]
     Active Substance: PERPHENAZINE
     Indication: Attention deficit hyperactivity disorder
     Route: 065
  22. PERPHENAZINE [Suspect]
     Active Substance: PERPHENAZINE
     Indication: Autism spectrum disorder
  23. ZIPRASIDONE [Suspect]
     Active Substance: ZIPRASIDONE
     Indication: Schizoaffective disorder bipolar type
     Dosage: 40 MILLIGRAM, BID
     Route: 065
  24. ZIPRASIDONE [Suspect]
     Active Substance: ZIPRASIDONE
     Indication: Attention deficit hyperactivity disorder
  25. ZIPRASIDONE [Suspect]
     Active Substance: ZIPRASIDONE
     Indication: Autism spectrum disorder
  26. AMLODIPINE [Concomitant]
     Active Substance: AMLODIPINE BESYLATE
     Indication: Schizoaffective disorder bipolar type
     Dosage: 10 MILLIGRAM, QD
     Route: 065
  27. AMLODIPINE [Concomitant]
     Active Substance: AMLODIPINE BESYLATE
     Indication: Attention deficit hyperactivity disorder
  28. AMLODIPINE [Concomitant]
     Active Substance: AMLODIPINE BESYLATE
     Indication: Autism spectrum disorder
  29. ARIPIPRAZOLE [Concomitant]
     Active Substance: ARIPIPRAZOLE
     Indication: Schizoaffective disorder bipolar type
     Dosage: 5 MILLIGRAM, QD
     Route: 065
  30. ARIPIPRAZOLE [Concomitant]
     Active Substance: ARIPIPRAZOLE
     Indication: Attention deficit hyperactivity disorder
  31. ARIPIPRAZOLE [Concomitant]
     Active Substance: ARIPIPRAZOLE
     Indication: Autism spectrum disorder
  32. FLUOXETINE [Concomitant]
     Active Substance: FLUOXETINE HYDROCHLORIDE
     Indication: Schizoaffective disorder bipolar type
     Dosage: 20 MILLIGRAM, QD
     Route: 065
  33. FLUOXETINE [Concomitant]
     Active Substance: FLUOXETINE HYDROCHLORIDE
     Indication: Attention deficit hyperactivity disorder
     Dosage: 10 MILLIGRAM, QD
     Route: 065
  34. FLUOXETINE [Concomitant]
     Active Substance: FLUOXETINE HYDROCHLORIDE
     Indication: Autism spectrum disorder
  35. POLYETHYLENE GLYCOL [Concomitant]
     Active Substance: POLYETHYLENE GLYCOL
     Indication: Schizoaffective disorder bipolar type
     Dosage: 17 GRAM, QD
     Route: 065
  36. POLYETHYLENE GLYCOL [Concomitant]
     Active Substance: POLYETHYLENE GLYCOL
     Indication: Attention deficit hyperactivity disorder
     Dosage: 17 GRAM, BID
     Route: 065
  37. POLYETHYLENE GLYCOL [Concomitant]
     Active Substance: POLYETHYLENE GLYCOL
     Indication: Autism spectrum disorder
  38. TRIHEXYPHENIDYL [Concomitant]
     Active Substance: TRIHEXYPHENIDYL
     Indication: Schizoaffective disorder bipolar type
     Route: 065
  39. TRIHEXYPHENIDYL [Concomitant]
     Active Substance: TRIHEXYPHENIDYL
     Indication: Attention deficit hyperactivity disorder
     Route: 065
  40. TRIHEXYPHENIDYL [Concomitant]
     Active Substance: TRIHEXYPHENIDYL
     Indication: Autism spectrum disorder
     Dosage: 10 MILLIGRAM, BID (TITRATED DOSE)
     Route: 065

REACTIONS (8)
  - Extrapyramidal disorder [Recovered/Resolved]
  - Fall [Unknown]
  - Adverse event [Unknown]
  - Drug level above therapeutic [Unknown]
  - Reaction to excipient [Unknown]
  - Sedation [Unknown]
  - Therapy partial responder [Unknown]
  - Drug ineffective [Unknown]
